FAERS Safety Report 21449342 (Version 1)
Quarter: 2022Q4

REPORT INFORMATION
  Report Type: Spontaneous
  Country: SE (occurrence: SE)
  Receive Date: 20221013
  Receipt Date: 20221013
  Transmission Date: 20230113
  Serious: Yes (Other)
  Sender: FDA-Public Use
  Company Number: SE-MPA-2014-003265

PATIENT
  Age: 1 Month
  Sex: Female

DRUGS (1)
  1. SERTRALINE [Suspect]
     Active Substance: SERTRALINE HYDROCHLORIDE
     Indication: Product used for unknown indication
     Dosage: THE MOTHER MEDICATED WITH SERTRALINE 100 MG 1X1 FROM 2012
     Route: 065
     Dates: start: 20130221, end: 20130419

REACTIONS (4)
  - Jaundice [Recovered/Resolved]
  - Maternal exposure during breast feeding [Recovered/Resolved]
  - Cholestasis [Recovered/Resolved]
  - Vomiting [Recovered/Resolved]

NARRATIVE: CASE EVENT DATE: 20130415
